FAERS Safety Report 9840636 (Version 1)
Quarter: 2014Q1

REPORT INFORMATION
  Report Type: Spontaneous
  Country: US (occurrence: US)
  Receive Date: 20140124
  Receipt Date: 20140124
  Transmission Date: 20141002
  Serious: No
  Sender: FDA-Public Use
  Company Number: US-PFIZER INC-2014022562

PATIENT
  Age: 57 Year
  Sex: Female
  Weight: 93.88 kg

DRUGS (6)
  1. XANAX [Suspect]
     Dosage: 1 MG, DAILY
  2. PROTONIX [Suspect]
     Dosage: UNK, 2X/DAY
  3. CELEXA [Concomitant]
     Indication: DEPRESSION
     Dosage: UNK,DAILY
     Dates: start: 2013
  4. MYCOPHENOLATE MOFETIL [Concomitant]
     Dosage: 500 MG, 4X/DAY
  5. TACROLIMUS [Concomitant]
     Dosage: 1 MG, 3X/DAY
  6. BABY ASPIRIN [Concomitant]
     Dosage: UNK,1X/DAY

REACTIONS (1)
  - Headache [Unknown]
